FAERS Safety Report 9227980 (Version 2)
Quarter: 2013Q2

REPORT INFORMATION
  Report Type: Report from Study
  Country: CA (occurrence: CA)
  Receive Date: 20130412
  Receipt Date: 20130424
  Transmission Date: 20140414
  Serious: Yes (Other)
  Sender: FDA-Public Use
  Company Number: CA-ROCHE-1177026

PATIENT
  Age: 51 Year
  Sex: Male
  Weight: 105 kg

DRUGS (13)
  1. AVASTIN [Suspect]
     Indication: GLIOBLASTOMA
     Route: 042
     Dates: start: 20121206, end: 20130228
  2. AVASTIN [Suspect]
     Route: 042
     Dates: start: 20130228
  3. ALLOPURINOL [Concomitant]
  4. FENOFIBRATE [Concomitant]
  5. DILANTIN [Concomitant]
  6. DECADRON [Concomitant]
     Dosage: DOSE DECREASED
     Route: 065
  7. CLOBAZAM [Concomitant]
  8. LOMUSTINE [Concomitant]
  9. LORAZEPAM [Concomitant]
  10. STEMETIL [Concomitant]
  11. RESTORALAX [Concomitant]
  12. TRANDOLAPRIL [Concomitant]
  13. ETOPOSIDE [Concomitant]
     Dosage: DAILY FOR 3 WEEKS AND THEN ONE WEEK OFF
     Route: 065

REACTIONS (8)
  - Disease progression [Unknown]
  - Partial seizures [Recovered/Resolved]
  - Headache [Recovered/Resolved]
  - Abdominal discomfort [Recovered/Resolved]
  - Nasopharyngitis [Recovering/Resolving]
  - Blood pressure increased [Recovering/Resolving]
  - Skin tightness [Not Recovered/Not Resolved]
  - Oedema [Recovering/Resolving]
